FAERS Safety Report 4477234-3 (Version None)
Quarter: 2004Q4

REPORT INFORMATION
  Report Type: 
  Country: None (occurrence: None)
  Receive Date: 20041013
  Receipt Date: 20040928
  Transmission Date: 20050328
  Serious: Yes (Hospitalization)
  Sender: FDA-Public Use
  Company Number: A04200400882

PATIENT
  Age: 72 Year
  Sex: Male

DRUGS (2)
  1. ELOXATIN [Suspect]
     Indication: COLORECTAL CANCER METASTATIC
     Dosage: 66.88 MG/M2 OTHER  INTRAVENOUS DRIP
     Route: 041
     Dates: start: 20040909, end: 20040909
  2. CAPECITABINE (CAPECITABINE) [Concomitant]

REACTIONS (4)
  - CARDIOVASCULAR DISORDER [None]
  - HYPOKALAEMIA [None]
  - NEUROPATHY [None]
  - SYNCOPE [None]
